FAERS Safety Report 25209699 (Version 1)
Quarter: 2025Q2

REPORT INFORMATION
  Report Type: Report from Study
  Country: GB (occurrence: GB)
  Receive Date: 20250417
  Receipt Date: 20250417
  Transmission Date: 20250716
  Serious: Yes (Other)
  Sender: TEVA
  Company Number: GB-TEVA-VS-3321331

PATIENT
  Age: 31 Year
  Sex: Male

DRUGS (1)
  1. COPAXONE [Suspect]
     Active Substance: GLATIRAMER ACETATE
     Indication: Ankylosing spondylitis
     Route: 058
     Dates: start: 20241106, end: 20250210

REACTIONS (8)
  - Anaphylactic shock [Unknown]
  - Dysphagia [Unknown]
  - Pyrexia [Unknown]
  - Hot flush [Unknown]
  - Nasopharyngitis [Unknown]
  - Dyspnoea [Unknown]
  - Product dose omission issue [Unknown]
  - Product use in unapproved indication [Unknown]

NARRATIVE: CASE EVENT DATE: 20250208
